FAERS Safety Report 14890983 (Version 2)
Quarter: 2018Q2

REPORT INFORMATION
  Report Type: Report from Study
  Country: US (occurrence: US)
  Receive Date: 20180514
  Receipt Date: 20180529
  Transmission Date: 20180711
  Serious: Yes (Other)
  Sender: FDA-Public Use
  Company Number: US-GILEAD-2018-0337851

PATIENT
  Age: 60 Year
  Sex: Female

DRUGS (2)
  1. AMBRISENTAN [Suspect]
     Active Substance: AMBRISENTAN
     Indication: PRODUCT USED FOR UNKNOWN INDICATION
     Dosage: 10 MG, QD
     Route: 065
     Dates: start: 20140410
  2. ORENITRAM [Concomitant]
     Active Substance: TREPROSTINIL

REACTIONS (8)
  - Hypotension [Unknown]
  - Dehydration [Unknown]
  - Nausea [Unknown]
  - Syncope [Unknown]
  - Gastroenteritis norovirus [Unknown]
  - Influenza [Unknown]
  - Urinary tract infection [Unknown]
  - Abdominal pain upper [Unknown]
